FAERS Safety Report 8002883-5 (Version None)
Quarter: 2011Q4

REPORT INFORMATION
  Report Type: 
  Country: None (occurrence: None)
  Receive Date: 20111222
  Receipt Date: 20110128
  Transmission Date: 20120403
  Serious: No
  Sender: FDA-Public Use
  Company Number: US-GLAXOSMITHKLINE-A0910206A

PATIENT
  Age: 74 Year
  Sex: Male

DRUGS (6)
  1. AVODART [Suspect]
     Indication: MICTURITION URGENCY
     Dosage: 1CAP PER DAY
     Route: 048
     Dates: start: 20101101
  2. ASPIRIN [Concomitant]
  3. TENORMIN [Concomitant]
  4. ZOCOR [Concomitant]
  5. UROXATRAL [Concomitant]
  6. UNKNOWN MEDICATION [Concomitant]

REACTIONS (2)
  - PARAESTHESIA [None]
  - HYPOAESTHESIA [None]
